FAERS Safety Report 8850691 (Version 1)
Quarter: 2012Q4

REPORT INFORMATION
  Report Type: 
  Country: FR (occurrence: FR)
  Receive Date: 20121019
  Receipt Date: 20121019
  Transmission Date: 20130627
  Serious: Yes (Hospitalization)
  Sender: FDA-Public Use
  Company Number: FR-JNJFOC-20121006994

PATIENT
  Age: 52 Year
  Sex: Female

DRUGS (10)
  1. REMICADE [Suspect]
     Indication: PROCTITIS HAEMORRHAGIC
     Route: 042
     Dates: start: 20120924, end: 20120924
  2. REMICADE [Suspect]
     Indication: PROCTITIS HAEMORRHAGIC
     Route: 042
     Dates: start: 20120910
  3. REMICADE [Suspect]
     Indication: PROCTITIS HAEMORRHAGIC
     Route: 042
     Dates: start: 20120123
  4. REMICADE [Suspect]
     Indication: PROCTITIS HAEMORRHAGIC
     Route: 042
  5. REMICADE [Suspect]
     Indication: COLITIS ULCERATIVE
     Route: 042
     Dates: start: 20120924, end: 20120924
  6. REMICADE [Suspect]
     Indication: COLITIS ULCERATIVE
     Route: 042
  7. REMICADE [Suspect]
     Indication: COLITIS ULCERATIVE
     Route: 042
     Dates: start: 20120123
  8. REMICADE [Suspect]
     Indication: COLITIS ULCERATIVE
     Route: 042
     Dates: start: 20120910
  9. HYDROCORTISONE [Concomitant]
     Indication: PREMEDICATION
     Route: 065
     Dates: start: 20120924
  10. HYDROCORTISONE [Concomitant]
     Indication: PREMEDICATION
     Route: 065
     Dates: start: 20120910

REACTIONS (7)
  - Infusion related reaction [Recovered/Resolved]
  - Rash [Recovered/Resolved]
  - Dyspnoea [Recovered/Resolved]
  - Malaise [Recovered/Resolved]
  - Paraesthesia [Unknown]
  - Arthralgia [Unknown]
  - Pruritus [Unknown]
